FAERS Safety Report 24675202 (Version 2)
Quarter: 2024Q4

REPORT INFORMATION
  Report Type: Spontaneous
  Country: US (occurrence: US)
  Receive Date: 20241128
  Receipt Date: 20241202
  Transmission Date: 20250114
  Serious: No
  Sender: BIOGEN
  Company Number: US-BIOGEN-2024BI01292073

PATIENT
  Age: 75 Year
  Sex: Female

DRUGS (1)
  1. PLEGRIDY [Suspect]
     Active Substance: PEGINTERFERON BETA-1A
     Indication: Multiple sclerosis
     Route: 050
     Dates: start: 20141106

REACTIONS (2)
  - Drug delivery system malfunction [Unknown]
  - Injection site bruising [Unknown]

NARRATIVE: CASE EVENT DATE: 20241125
